FAERS Safety Report 23969677 (Version 1)
Quarter: 2024Q2

REPORT INFORMATION
  Report Type: Spontaneous
  Country: US (occurrence: US)
  Receive Date: 20240613
  Receipt Date: 20240613
  Transmission Date: 20240716
  Serious: Yes (Hospitalization)
  Sender: FDA-Public Use
  Company Number: US-STRIDES ARCOLAB LIMITED-2023SP009625

PATIENT
  Age: 54 Year
  Sex: Female

DRUGS (5)
  1. CINACALCET [Suspect]
     Active Substance: CINACALCET
     Indication: Ectopic parathyroid hormone production
     Dosage: 30 MILLIGRAM PER DAY
     Route: 065
  2. CINACALCET [Suspect]
     Active Substance: CINACALCET
     Indication: Hypercalcaemia
  3. CALCITONIN [Suspect]
     Active Substance: CALCITONIN
     Indication: Hypercalcaemia
     Dosage: UNK, NASAL SPRAY DAILY PER DAY
     Route: 045
  4. CALCITONIN [Suspect]
     Active Substance: CALCITONIN
     Dosage: 300 INTERNATIONAL UNIT, BID
     Route: 058
  5. ALENDRONATE [Suspect]
     Active Substance: ALENDRONATE SODIUM
     Indication: Hypercalcaemia
     Dosage: 70 MILLIGRAM PER WEEK
     Route: 065

REACTIONS (2)
  - Drug ineffective [Unknown]
  - Therapy partial responder [Unknown]
